FAERS Safety Report 6618474-4 (Version None)
Quarter: 2010Q1

REPORT INFORMATION
  Report Type: 
  Country: None (occurrence: None)
  Receive Date: 20100308
  Receipt Date: 20100226
  Transmission Date: 20100710
  Serious: Yes (Hospitalization)
  Sender: FDA-Public Use
  Company Number: JP-ABBOTT-10P-087-0624228-00

PATIENT
  Sex: Female
  Weight: 39 kg

DRUGS (18)
  1. HUMIRA [Suspect]
     Indication: RHEUMATOID ARTHRITIS
     Route: 058
     Dates: start: 20090801, end: 20091023
  2. HUMIRA [Suspect]
     Route: 058
     Dates: start: 20091023, end: 20100120
  3. METHOTREXATE [Concomitant]
     Indication: DRUG USE FOR UNKNOWN INDICATION
     Dates: start: 20090802, end: 20090926
  4. METHOTREXATE [Concomitant]
     Dates: start: 20090927
  5. FOLIC ACID [Concomitant]
     Indication: DRUG USE FOR UNKNOWN INDICATION
     Dates: start: 20090804
  6. FARNAZONE [Concomitant]
     Indication: RHEUMATOID ARTHRITIS
     Route: 061
     Dates: start: 20090729
  7. PALECS USUPITA PACKING SHEET [Concomitant]
     Indication: RHEUMATOID ARTHRITIS
     Dosage: ADEQUATE DOSE
     Route: 061
  8. MELOXICAM [Concomitant]
     Indication: RHEUMATOID ARTHRITIS
     Route: 048
     Dates: start: 20091219
  9. PREDNISOLONE [Concomitant]
     Indication: RHEUMATOID ARTHRITIS
     Route: 048
     Dates: start: 20090704, end: 20091119
  10. PREDNISOLONE [Concomitant]
     Route: 048
     Dates: start: 20091120
  11. PREDNISOLONE [Concomitant]
     Route: 048
     Dates: start: 20091120
  12. REBAMIPIDE [Concomitant]
     Indication: GASTRITIS PROPHYLAXIS
     Route: 048
     Dates: start: 20091120
  13. ISCOTIN [Concomitant]
     Indication: ANTIBIOTIC PROPHYLAXIS
     Route: 048
     Dates: start: 20090709
  14. PYDOXAL [Concomitant]
     Indication: VITAMIN B COMPLEX DEFICIENCY
     Route: 048
     Dates: start: 20090709
  15. CALFINA [Concomitant]
     Indication: OSTEOPOROSIS PROPHYLAXIS
     Route: 048
     Dates: start: 20090704
  16. VOGLIBOSE [Concomitant]
     Indication: HYPERGLYCAEMIA
     Route: 048
     Dates: start: 20091120
  17. ZENOL [Concomitant]
     Indication: DRUG USE FOR UNKNOWN INDICATION
     Dosage: ADEQUATE DOSE
     Route: 061
     Dates: start: 20090601
  18. LOXONIN [Concomitant]
     Indication: DRUG USE FOR UNKNOWN INDICATION
     Dosage: ADEQUATE DOSE
     Route: 061
     Dates: start: 20100203

REACTIONS (1)
  - C-REACTIVE PROTEIN INCREASED [None]
